FAERS Safety Report 7101377-9 (Version None)
Quarter: 2010Q4

REPORT INFORMATION
  Report Type: 
  Country: None (occurrence: None)
  Receive Date: 20101115
  Receipt Date: 20101111
  Transmission Date: 20110411
  Serious: Yes (Death, Hospitalization)
  Sender: FDA-Public Use
  Company Number: HU-BRISTOL-MYERS SQUIBB COMPANY-14742209

PATIENT
  Age: 67 Year
  Sex: Male
  Weight: 50 kg

DRUGS (9)
  1. PACLITAXEL [Suspect]
     Indication: NON-SMALL CELL LUNG CANCER
     Dosage: CYCLIC CUMULATIVE DOSE:300MG
     Route: 042
     Dates: start: 20090701, end: 20090701
  2. CARBOPLATIN [Suspect]
     Indication: NON-SMALL CELL LUNG CANCER
     Dosage: 1DF=6AUC,CYCLIC CUMULATIVE DOSE:613MG
     Route: 042
     Dates: start: 20090701, end: 20090701
  3. SYMBICORT [Concomitant]
     Dates: start: 19960101, end: 20090724
  4. BERODUAL [Concomitant]
     Dates: start: 19960101, end: 20090724
  5. THEOSPIREX [Concomitant]
     Dates: start: 19960101, end: 20090724
  6. CONTRAMAL [Concomitant]
     Dates: start: 20090501, end: 20090724
  7. ACETYLCYSTEINE [Concomitant]
     Dates: start: 19960101, end: 20090724
  8. PANCREATIN [Concomitant]
     Dates: start: 19860101, end: 20090724
  9. PAPAVERINE [Concomitant]
     Dates: start: 19860101, end: 20090724

REACTIONS (2)
  - DEHYDRATION [None]
  - GRANULOCYTOPENIA [None]
